FAERS Safety Report 6447960-5 (Version None)
Quarter: 2009Q4

REPORT INFORMATION
  Report Type: 
  Country: None (occurrence: None)
  Receive Date: 20091120
  Receipt Date: 20091111
  Transmission Date: 20100525
  Serious: Yes (Hospitalization, Other)
  Sender: FDA-Public Use
  Company Number: US-JNJFOC-20081101950

PATIENT
  Sex: Female
  Weight: 72.58 kg

DRUGS (12)
  1. REMICADE [Suspect]
     Route: 042
  2. REMICADE [Suspect]
     Route: 042
  3. REMICADE [Suspect]
     Route: 042
  4. REMICADE [Suspect]
     Route: 042
  5. REMICADE [Suspect]
     Indication: SPONDYLITIS
     Route: 042
  6. REMICADE [Suspect]
     Indication: ANKYLOSING SPONDYLITIS
     Route: 042
  7. METHOTREXATE [Concomitant]
     Indication: SPONDYLITIS
  8. METHOTREXATE [Concomitant]
     Indication: ANKYLOSING SPONDYLITIS
  9. SULFASALAZINE [Concomitant]
     Indication: SPONDYLITIS
  10. SULFASALAZINE [Concomitant]
     Indication: ANKYLOSING SPONDYLITIS
  11. PREDNISONE [Concomitant]
     Indication: SPONDYLITIS
  12. PREDNISONE [Concomitant]
     Indication: ANKYLOSING SPONDYLITIS
     Dosage: INTERMITTENT, TAPERED DOSE STARTING AT 20MG

REACTIONS (5)
  - MUSCULAR WEAKNESS [None]
  - PARAPARESIS [None]
  - SPINAL CORD DISORDER [None]
  - URINARY INCONTINENCE [None]
  - VOCAL CORD DISORDER [None]
